FAERS Safety Report 4337439-9 (Version None)
Quarter: 2004Q2

REPORT INFORMATION
  Report Type: 
  Country: None (occurrence: None)
  Receive Date: 20040409
  Receipt Date: 20040326
  Transmission Date: 20050107
  Serious: Yes (Other)
  Sender: FDA-Public Use
  Company Number: US070404

PATIENT
  Age: 48 Year
  Sex: Female

DRUGS (2)
  1. ENBREL [Suspect]
     Indication: RHEUMATOID ARTHRITIS
     Dosage: SC
     Route: 058
     Dates: start: 20030501, end: 20040301
  2. METHOTREXATE [Suspect]
     Dosage: 10 MG, 1 IN 1 WEEKS, PO
     Route: 048
     Dates: start: 20030901

REACTIONS (2)
  - BREAST CANCER [None]
  - DRUG INEFFECTIVE [None]
